APPROVED DRUG PRODUCT: SILDENAFIL CITRATE
Active Ingredient: SILDENAFIL CITRATE
Strength: EQ 10MG BASE/12.5ML (EQ 0.8MG BASE/ML)
Dosage Form/Route: SOLUTION;INTRAVENOUS
Application: A203988 | Product #001 | TE Code: AP
Applicant: EUGIA PHARMA SPECIALITIES LTD
Approved: Apr 1, 2015 | RLD: No | RS: No | Type: RX